FAERS Safety Report 8465252-X (Version None)
Quarter: 2012Q2

REPORT INFORMATION
  Report Type: 
  Country: None (occurrence: None)
  Receive Date: 20120626
  Receipt Date: 20120618
  Transmission Date: 20120825
  Serious: Yes (Life-Threatening, Hospitalization, Other)
  Sender: FDA-Public Use
  Company Number: JP-GENZYME-THYM-1002857

PATIENT
  Sex: Female
  Weight: 24 kg

DRUGS (27)
  1. SUCRALFATE [Concomitant]
     Indication: PROPHYLAXIS
     Dosage: UNK
     Dates: start: 20110501, end: 20110519
  2. FLUDARABINE PHOSPHATE [Concomitant]
     Indication: MYELODYSPLASTIC SYNDROME
     Dosage: UNK
     Dates: start: 20110401, end: 20110405
  3. METHYLPEDNISOLONE SODIUM SUCCINATE [Concomitant]
     Indication: PROPHYLAXIS
     Dosage: UNK
     Dates: start: 20110405, end: 20110408
  4. MIXED AMINO ACID PREPARATIONS FOR TOTAL PARENTERAL NUTRITION [Concomitant]
     Indication: PROPHYLAXIS
     Dosage: UNK
     Dates: start: 20110405, end: 20110831
  5. MANGANESE CHLORIDE ZINC SULFATE COMBINED DRUG [Concomitant]
     Indication: MINERAL SUPPLEMENTATION
     Dosage: UNK
     Dates: start: 20110405, end: 20110830
  6. MELPHALAN HYDROCHLORIDE [Concomitant]
     Indication: MYELODYSPLASTIC SYNDROME
     Dosage: UNK
     Dates: start: 20110403, end: 20110404
  7. PH4 TREATED ACIDIC HUMAN NORMAL IMMUNOGLOBULIN [Concomitant]
     Indication: ANTIVIRAL PROPHYLAXIS
     Dosage: UNK
     Dates: start: 20110413, end: 20110506
  8. ACYCLOVIR [Concomitant]
     Dosage: UNK
     Dates: start: 20110406, end: 20110712
  9. IMMUNE GLOBULIN (HUMAN) [Concomitant]
     Indication: ANTIVIRAL PROPHYLAXIS
     Dosage: UNK
     Dates: start: 20110405, end: 20110406
  10. TACROLIMUS [Concomitant]
     Indication: PROPHYLAXIS AGAINST GRAFT VERSUS HOST DISEASE
     Dosage: UNK
     Dates: start: 20110406, end: 20110627
  11. METHOTREXATE [Concomitant]
     Indication: PROPHYLAXIS AGAINST GRAFT VERSUS HOST DISEASE
     Dosage: UNK
     Dates: start: 20110408, end: 20110519
  12. ACYCLOVIR [Concomitant]
     Indication: PROPHYLAXIS
     Dosage: UNK
     Dates: start: 20110330
  13. SULFAMETHOPRIM [Concomitant]
     Indication: ANTIFUNGAL PROPHYLAXIS
     Dosage: UNK
     Dates: start: 20110415, end: 20110911
  14. GRANISETRON HYDROCHLORIDE [Concomitant]
     Dosage: UNK
     Dates: start: 20110408, end: 20110410
  15. THYMOGLOBULIN [Suspect]
     Indication: BONE MARROW CONDITIONING REGIMEN
     Dosage: 60 MG, QD
     Route: 042
     Dates: start: 20110405, end: 20110406
  16. URSODIOL [Concomitant]
     Indication: PROPHYLAXIS
     Dosage: UNK
     Dates: start: 20110330, end: 20110623
  17. AMPHOTERICIN B [Concomitant]
     Indication: ANTIFUNGAL PROPHYLAXIS
     Dosage: UNK
     Dates: start: 20110501
  18. DALTEPARIN SODIUM [Concomitant]
     Indication: PROPHYLAXIS
     Dosage: UNK
     Dates: start: 20110830, end: 20110831
  19. GRANISETRON HYDROCHLORIDE [Concomitant]
     Indication: PROPHYLAXIS OF NAUSEA AND VOMITING
     Dosage: UNK
     Dates: start: 20110331, end: 20110408
  20. MICAFUNGIN SODIUM [Concomitant]
     Indication: ANTIFUNGAL PROPHYLAXIS
     Dosage: UNK
     Dates: start: 20110402, end: 20110901
  21. PREDNISOLONE ACETATE [Concomitant]
     Indication: PROPHYLAXIS AGAINST GRAFT VERSUS HOST DISEASE
     Dosage: UNK
     Dates: start: 20110409, end: 20110701
  22. SUCRALFATE [Concomitant]
     Dosage: UNK
     Dates: start: 20110330, end: 20110428
  23. CARBOCISTEINE [Concomitant]
     Indication: COUGH
     Dosage: UNK
     Dates: start: 20110610
  24. HAPTOGLOBINS [Concomitant]
     Indication: PROPHYLAXIS
     Dosage: UNK
     Dates: start: 20110407, end: 20110407
  25. ANTITHROMBIN III HUMAN [Concomitant]
     Indication: PROPHYLAXIS
     Dosage: UNK
     Dates: start: 20110501, end: 20110522
  26. MULTIPLE VITAMIN FOR TOTAL PARENTERAL NUTRITION [Concomitant]
     Indication: VITAMIN SUPPLEMENTATION
     Dosage: UNK
     Dates: start: 20110405, end: 20110831
  27. TOTAL BODY IRRADIATION [Concomitant]
     Indication: MYELODYSPLASTIC SYNDROME
     Dosage: UNK
     Dates: start: 20110331, end: 20110331

REACTIONS (14)
  - CHRONIC GRAFT VERSUS HOST DISEASE [None]
  - PANCREATITIS [None]
  - GASTRITIS [None]
  - BRONCHITIS [None]
  - GRAFT VERSUS HOST DISEASE [None]
  - MUCOUS MEMBRANE DISORDER [None]
  - DEVICE OCCLUSION [None]
  - PLATELET COUNT DECREASED [None]
  - LIVER DISORDER [None]
  - DIARRHOEA [None]
  - OEDEMA [None]
  - FEBRILE NEUTROPENIA [None]
  - INSOMNIA [None]
  - HYPERTENSION [None]
